FAERS Safety Report 11365873 (Version 1)
Quarter: 2015Q3

REPORT INFORMATION
  Report Type: Spontaneous
  Country: FR (occurrence: FR)
  Receive Date: 20150811
  Receipt Date: 20150811
  Transmission Date: 20151125
  Serious: Yes (Other)
  Sender: FDA-Public Use
  Company Number: FR-GE HEALTHCARE MEDICAL DIAGNOSTICS-VISP-PR-1508S-0303

PATIENT
  Age: 78 Year
  Sex: Female
  Weight: 53 kg

DRUGS (11)
  1. LEXOMIL [Concomitant]
     Active Substance: BROMAZEPAM
  2. CRESTOR [Concomitant]
     Active Substance: ROSUVASTATIN CALCIUM
  3. EFFERALGAN [Concomitant]
     Active Substance: ACETAMINOPHEN
  4. VISIPAQUE [Suspect]
     Active Substance: IODIXANOL
     Indication: STENT PLACEMENT
     Route: 042
     Dates: start: 20150702, end: 20150702
  5. COAPROVEL [Concomitant]
     Active Substance: HYDROCHLOROTHIAZIDE\IRBESARTAN
  6. ZANIDIP [Concomitant]
     Active Substance: LERCANIDIPINE HYDROCHLORIDE
  7. VISIPAQUE [Suspect]
     Active Substance: IODIXANOL
     Indication: DIAGNOSTIC PROCEDURE
     Route: 042
     Dates: start: 20150708, end: 20150708
  8. NOVONORM [Concomitant]
     Active Substance: REPAGLINIDE
  9. EUPANTOL [Concomitant]
     Active Substance: PANTOPRAZOLE SODIUM
  10. VISIPAQUE [Suspect]
     Active Substance: IODIXANOL
     Indication: ACUTE CORONARY SYNDROME
     Dosage: DOSE NOT REPORTED
     Route: 042
     Dates: start: 20150630, end: 20150630
  11. CALCIPRAT VITAMIN D3 [Concomitant]

REACTIONS (1)
  - Skin exfoliation [Recovered/Resolved]

NARRATIVE: CASE EVENT DATE: 20150710
